FAERS Safety Report 4274337-3 (Version None)
Quarter: 2004Q1

REPORT INFORMATION
  Report Type: 
  Country: None (occurrence: None)
  Receive Date: 20040115
  Receipt Date: 20040107
  Transmission Date: 20041129
  Serious: Yes (Hospitalization)
  Sender: FDA-Public Use
  Company Number: 2003191248GB

PATIENT
  Age: 28 Year
  Sex: Female
  Weight: 54 kg

DRUGS (1)
  1. DEPO-PROVERA [Suspect]
     Indication: CONTRACEPTION
     Dosage: FIRST INJ/VERY 12 WEEKS, INTRAMUSCULAR
     Route: 030
     Dates: start: 19970501, end: 19970501

REACTIONS (2)
  - INJECTION SITE ABSCESS [None]
  - INJECTION SITE CELLULITIS [None]
